FAERS Safety Report 21930924 (Version 1)
Quarter: 2023Q1

REPORT INFORMATION
  Report Type: Report from Study
  Country: US (occurrence: US)
  Receive Date: 20230131
  Receipt Date: 20230131
  Transmission Date: 20230417
  Serious: Yes (Other)
  Sender: FDA-Public Use
  Company Number: US-TAKEDA-US201929937

PATIENT
  Age: 31 Year
  Sex: Female
  Weight: 97 kg

DRUGS (24)
  1. LANADELUMAB [Suspect]
     Active Substance: LANADELUMAB
     Indication: Hereditary angioedema
     Dosage: 300 MILLIGRAM, Q2WEEKS
     Route: 065
     Dates: start: 2018, end: 202001
  2. FIRAZYR [Suspect]
     Active Substance: ICATIBANT ACETATE
     Indication: Hereditary angioedema
     Dosage: UNK
     Route: 065
  3. FIRAZYR [Suspect]
     Active Substance: ICATIBANT ACETATE
     Indication: Hereditary angioedema
     Dosage: UNK
     Route: 065
  4. CINRYZE [Suspect]
     Active Substance: HUMAN C1-ESTERASE INHIBITOR
     Indication: Immune system disorder
     Dosage: 2500 DOSAGE FORM
     Route: 065
     Dates: start: 20101027
  5. CINRYZE [Suspect]
     Active Substance: HUMAN C1-ESTERASE INHIBITOR
     Indication: Immune system disorder
     Dosage: 2500 DOSAGE FORM
     Route: 065
     Dates: start: 20101027
  6. CINRYZE [Suspect]
     Active Substance: HUMAN C1-ESTERASE INHIBITOR
     Indication: Immune system disorder
     Dosage: 2500 DOSAGE FORM
     Route: 065
     Dates: start: 20101027
  7. VYVANSE [Concomitant]
     Active Substance: LISDEXAMFETAMINE DIMESYLATE
     Indication: Binge eating
     Dosage: 20 MILLIGRAM
     Route: 048
     Dates: start: 20190702
  8. TRANEXAMIC ACID [Concomitant]
     Active Substance: TRANEXAMIC ACID
     Indication: Heavy menstrual bleeding
     Dosage: 650 MILLIGRAM
     Route: 048
     Dates: start: 20190702, end: 20191028
  9. GABAPENTIN [Concomitant]
     Active Substance: GABAPENTIN
     Indication: Neuralgia
     Dosage: 300 MILLIGRAM
     Route: 048
     Dates: start: 20190702
  10. OXYCODONE [Concomitant]
     Active Substance: OXYCODONE
     Indication: Intervertebral disc operation
     Dosage: 5 MILLIGRAM
     Route: 048
     Dates: start: 20190729, end: 20190805
  11. CETIRIZINE HYDROCHLORIDE [Concomitant]
     Active Substance: CETIRIZINE HYDROCHLORIDE
     Indication: Rhinitis allergic
     Dosage: 10 MILLIGRAM
     Route: 048
     Dates: start: 20130729
  12. LEXAPRO [Concomitant]
     Active Substance: ESCITALOPRAM OXALATE
     Indication: Depression
     Dosage: 10 MILLIGRAM
     Route: 048
     Dates: start: 20160811
  13. HUMIRA [Concomitant]
     Active Substance: ADALIMUMAB
     Indication: Hidradenitis
     Dosage: 40 MILLIGRAM
     Route: 048
     Dates: start: 20190702
  14. SPIRONOLACTONE [Concomitant]
     Active Substance: SPIRONOLACTONE
     Indication: Hidradenitis
     Dosage: 50 MILLIGRAM
     Route: 048
     Dates: start: 20190702
  15. BARIUM [Concomitant]
     Active Substance: BARIUM
     Indication: Gastrointestinal disorder
     Route: 065
  16. ORAPRED [Concomitant]
     Active Substance: PREDNISOLONE SODIUM PHOSPHATE
     Indication: Angioedema
     Dosage: 30 MILLIGRAM
     Route: 048
     Dates: start: 201912
  17. XANAX [Concomitant]
     Active Substance: ALPRAZOLAM
     Indication: Anxiety
     Dosage: 1 MILLIGRAM
     Route: 048
     Dates: start: 202003
  18. HEPARIN [Concomitant]
     Active Substance: HEPARIN SODIUM
     Indication: Catheterisation venous
     Dosage: 100 INTERNATIONAL UNIT
     Route: 042
     Dates: start: 20191202, end: 20191202
  19. SODIUM CHLORIDE [Concomitant]
     Active Substance: SODIUM CHLORIDE
     Dosage: UNK
     Route: 065
  20. STERILE WATER [Concomitant]
     Active Substance: WATER
  21. EPINEPHRINE [Concomitant]
     Active Substance: EPINEPHRINE
     Indication: Product used for unknown indication
  22. DEPO-PROVERA [Concomitant]
     Active Substance: MEDROXYPROGESTERONE ACETATE
  23. BENADRYL [Concomitant]
     Active Substance: DIPHENHYDRAMINE HYDROCHLORIDE
     Indication: Rash
     Dosage: 50 MILLIGRAM
     Route: 048
     Dates: start: 201912
  24. CORTISONE [Concomitant]
     Active Substance: CORTISONE
     Indication: Drug hypersensitivity
     Dosage: 1 PERCENT
     Route: 061
     Dates: start: 20191202

REACTIONS (7)
  - Angioedema [Recovered/Resolved]
  - Pharyngitis [Unknown]
  - Post procedural inflammation [Not Recovered/Not Resolved]
  - Dumping syndrome [Recovered/Resolved with Sequelae]
  - Anxiety [Not Recovered/Not Resolved]
  - Hereditary angioedema [Recovered/Resolved]
  - Malaise [Unknown]

NARRATIVE: CASE EVENT DATE: 20190929
